FAERS Safety Report 7357413-8 (Version None)
Quarter: 2011Q1

REPORT INFORMATION
  Report Type: 
  Country: None (occurrence: None)
  Receive Date: 20110317
  Receipt Date: 20110310
  Transmission Date: 20110831
  Serious: Yes (Other)
  Sender: FDA-Public Use
  Company Number: FR-PFIZER INC-2011052754

PATIENT
  Age: 91 Year
  Sex: Male

DRUGS (9)
  1. BRICANYL [Concomitant]
     Dosage: UNKNOWN
  2. XATRAL [Concomitant]
     Dosage: UNKNOWN
  3. CALCIPARINE [Concomitant]
     Dosage: UNKNOWN
  4. OFLOCET [Suspect]
     Indication: INFECTION
     Dosage: 200 MG, 4X/DAY
     Route: 048
     Dates: start: 20110120, end: 20110124
  5. NEXIUM [Concomitant]
     Dosage: UNKNOWN
  6. VITAMIN K1 [Concomitant]
     Dosage: UNKNOWN
  7. LASIX [Concomitant]
     Dosage: UNKNOWN
  8. ZYVOX [Suspect]
     Indication: INFECTION
     Dosage: 600 MG, 2X/DAY
     Route: 048
     Dates: start: 20110123, end: 20110124
  9. ATROVENT [Concomitant]
     Dosage: UNKNOWN

REACTIONS (1)
  - STATUS EPILEPTICUS [None]
